FAERS Safety Report 4284650-1 (Version None)
Quarter: 2004Q1

REPORT INFORMATION
  Report Type: 
  Country: None (occurrence: None)
  Receive Date: 20040130
  Receipt Date: 20040107
  Transmission Date: 20041129
  Serious: Yes (Other)
  Sender: FDA-Public Use
  Company Number: JP_040102485

PATIENT
  Age: 2 Year
  Sex: Male

DRUGS (3)
  1. ONCOVIN [Suspect]
     Indication: NEPHROBLASTOMA
  2. DACTINOMYCIN [Concomitant]
  3. CYCLOPHOSPHAMIDE [Concomitant]

REACTIONS (7)
  - BONE MARROW DEPRESSION [None]
  - HAEMOTHORAX [None]
  - INAPPROPRIATE ANTIDIURETIC HORMONE SECRETION [None]
  - MALIGNANT NEOPLASM PROGRESSION [None]
  - NEUROBLASTOMA [None]
  - PLEURAL EFFUSION [None]
  - TUMOUR MARKER INCREASED [None]
